FAERS Safety Report 13645895 (Version 1)
Quarter: 2017Q2

REPORT INFORMATION
  Report Type: Spontaneous
  Country: CA (occurrence: CA)
  Receive Date: 20170613
  Receipt Date: 20170613
  Transmission Date: 20170830
  Serious: Yes (Hospitalization)
  Sender: FDA-Public Use
  Company Number: CA-ASTRAZENECA-2017SE60225

PATIENT
  Age: 16 Year
  Sex: Female
  Weight: 82.1 kg

DRUGS (1)
  1. ALVESCO [Suspect]
     Active Substance: CICLESONIDE
     Indication: ASTHMA
     Dosage: 120.0 MILLIGRAM, 2 EVERY DAY
     Route: 055

REACTIONS (2)
  - Haemoptysis [Recovered/Resolved]
  - Bronchoscopy [Recovered/Resolved]
